FAERS Safety Report 5857679-7 (Version None)
Quarter: 2008Q3

REPORT INFORMATION
  Report Type: 
  Country: None (occurrence: None)
  Receive Date: 20080822
  Receipt Date: 20080811
  Transmission Date: 20090109
  Serious: No
  Sender: FDA-Public Use
  Company Number: 2008AP002077

PATIENT
  Sex: 0

DRUGS (1)
  1. PAROXETINE HCL [Suspect]
     Dosage: TRPL
     Route: 064

REACTIONS (2)
  - CONGENITAL CYSTIC KIDNEY DISEASE [None]
  - MATERNAL DRUGS AFFECTING FOETUS [None]
